FAERS Safety Report 6739450-7 (Version None)
Quarter: 2010Q2

REPORT INFORMATION
  Report Type: 
  Country: None (occurrence: None)
  Receive Date: 20100525
  Receipt Date: 20100518
  Transmission Date: 20101027
  Serious: Yes (Death, Other)
  Sender: FDA-Public Use
  Company Number: JP-BAYER-201011228BYL

PATIENT
  Age: 63 Year
  Sex: Male
  Weight: 50 kg

DRUGS (12)
  1. NEXAVAR [Suspect]
     Indication: HEPATIC NEOPLASM MALIGNANT
     Dosage: TOTAL DAILY DOSE: 800 MG  UNIT DOSE: 200 MG
     Route: 048
     Dates: start: 20100219, end: 20100227
  2. NEXAVAR [Suspect]
     Dosage: UNIT DOSE: 200 MG
     Route: 048
     Dates: end: 20100426
  3. DEPAS [Suspect]
     Route: 048
     Dates: end: 20100412
  4. MYSLEE [Suspect]
     Route: 048
     Dates: end: 20100412
  5. OXYCONTIN [Concomitant]
     Dosage: UNIT DOSE: 5 MG
     Route: 048
     Dates: start: 20100220, end: 20100426
  6. SELBEX [Concomitant]
     Dosage: UNIT DOSE: 50 MG
     Route: 048
     Dates: start: 20100201, end: 20100426
  7. OLMESARTAN MEDOXOMIL [Concomitant]
     Dosage: UNIT DOSE: 20 MG
     Route: 048
     Dates: start: 20100214, end: 20100426
  8. NORVASC [Concomitant]
     Dosage: UNIT DOSE: 5 MG
     Route: 048
     Dates: start: 20100214, end: 20100426
  9. PARIET [Concomitant]
     Dosage: UNIT DOSE: 10 MG
     Route: 048
     Dates: start: 20100216, end: 20100426
  10. SENNOSIDE [Concomitant]
     Dosage: UNIT DOSE: 12 MG
     Route: 048
     Dates: start: 20100220, end: 20100426
  11. PROCHLORPERAZINE [Concomitant]
     Dosage: UNIT DOSE: 5 MG
     Route: 048
     Dates: start: 20100220, end: 20100426
  12. ALLELOCK [Concomitant]
     Dosage: UNIT DOSE: 5 MG
     Route: 048
     Dates: start: 20100227, end: 20100426

REACTIONS (3)
  - COMPLETED SUICIDE [None]
  - DRUG ERUPTION [None]
  - HEPATIC ENCEPHALOPATHY [None]
